FAERS Safety Report 18031045 (Version 1)
Quarter: 2020Q3

REPORT INFORMATION
  Report Type: Spontaneous
  Country: US (occurrence: US)
  Receive Date: 20200715
  Receipt Date: 20200715
  Transmission Date: 20201103
  Serious: No
  Sender: FDA-Public Use
  Company Number: None

PATIENT
  Age: 74 Year
  Sex: Male

DRUGS (2)
  1. AVASTIN [Concomitant]
     Active Substance: BEVACIZUMAB
  2. TEMOZOLOMIDE CAP 140MG [Suspect]
     Active Substance: TEMOZOLOMIDE
     Dosage: OTHER FREQUENCY:OTHER;?
     Route: 048
     Dates: start: 202006

REACTIONS (2)
  - Intentional dose omission [None]
  - White blood cell count decreased [None]

NARRATIVE: CASE EVENT DATE: 20200620
